FAERS Safety Report 12174029 (Version 8)
Quarter: 2017Q1

REPORT INFORMATION
  Report Type: Report from Study
  Country: CA (occurrence: CA)
  Receive Date: 20160314
  Receipt Date: 20170105
  Transmission Date: 20170428
  Serious: Yes (Other)
  Sender: FDA-Public Use
  Company Number: CA-ROCHE-1725132

PATIENT
  Sex: Female

DRUGS (11)
  1. JANUVIA [Concomitant]
     Active Substance: SITAGLIPTIN PHOSPHATE
  2. CRESTOR [Concomitant]
     Active Substance: ROSUVASTATIN CALCIUM
  3. ESBRIET [Suspect]
     Active Substance: PIRFENIDONE
     Indication: IDIOPATHIC PULMONARY FIBROSIS
     Route: 048
     Dates: start: 20160202
  4. ESBRIET [Suspect]
     Active Substance: PIRFENIDONE
     Route: 048
     Dates: start: 201611, end: 20161223
  5. ESBRIET [Suspect]
     Active Substance: PIRFENIDONE
     Dosage: 1602MG/DAY
     Route: 048
     Dates: start: 2016
  6. METOPROLOL. [Concomitant]
     Active Substance: METOPROLOL
  7. ESBRIET [Suspect]
     Active Substance: PIRFENIDONE
     Dosage: UNKNOWN DOSE AND FREQUENCY
     Route: 048
     Dates: start: 2016
  8. AMLODIPINE [Concomitant]
     Active Substance: AMLODIPINE BESYLATE
  9. LYRICA [Concomitant]
     Active Substance: PREGABALIN
  10. INSULIN [Concomitant]
     Active Substance: INSULIN NOS
     Indication: DIABETES MELLITUS
     Route: 048
  11. FUROSEMIDE. [Concomitant]
     Active Substance: FUROSEMIDE

REACTIONS (7)
  - Blood glucose increased [Not Recovered/Not Resolved]
  - Fatigue [Not Recovered/Not Resolved]
  - Carbon monoxide diffusing capacity decreased [Unknown]
  - Gallbladder disorder [Unknown]
  - Hepatic enzyme increased [Unknown]
  - Liver disorder [Not Recovered/Not Resolved]
  - Forced vital capacity decreased [Unknown]
